FAERS Safety Report 8890287 (Version 1)
Quarter: 2012Q4

REPORT INFORMATION
  Report Type: 
  Country: US (occurrence: US)
  Receive Date: 20121107
  Receipt Date: 20121107
  Transmission Date: 20130627
  Serious: Yes (Hospitalization, Other)
  Sender: FDA-Public Use
  Company Number: US-ELI_LILLY_AND_COMPANY-US201210009083

PATIENT
  Age: 43 Year
  Sex: Female

DRUGS (4)
  1. CYMBALTA [Suspect]
     Indication: DEPRESSION
     Dosage: 120 mg, unknown
  2. SYNTHROID [Concomitant]
  3. PERCOCET [Concomitant]
  4. XANAX [Concomitant]

REACTIONS (10)
  - Convulsion [Unknown]
  - Gastric bypass [Unknown]
  - Headache [Unknown]
  - Anxiety [Unknown]
  - Dizziness [Unknown]
  - Hyperhidrosis [Unknown]
  - Paraesthesia [Unknown]
  - Drug withdrawal syndrome [Unknown]
  - Diabetes mellitus [Unknown]
  - Intentional drug misuse [Unknown]
